FAERS Safety Report 18132887 (Version 4)
Quarter: 2020Q4

REPORT INFORMATION
  Report Type: Spontaneous
  Country: JP (occurrence: JP)
  Receive Date: 20200811
  Receipt Date: 20201228
  Transmission Date: 20210113
  Serious: Yes (Life-Threatening, Other)
  Sender: FDA-Public Use
  Company Number: JP-ROCHE-2655971

PATIENT
  Age: 42 Year
  Sex: Female
  Weight: 60 kg

DRUGS (13)
  1. ACTEMRA [Suspect]
     Active Substance: TOCILIZUMAB
     Indication: CYTOKINE RELEASE SYNDROME
     Dosage: DOSE INTERVAL UNCERTAINTY
     Route: 041
     Dates: start: 20200313
  2. KYMRIAH [Suspect]
     Active Substance: TISAGENLECLEUCEL
     Indication: DIFFUSE LARGE B-CELL LYMPHOMA
     Dosage: 0.6-6.0 X 10E8 / DAY
     Route: 041
     Dates: start: 20200309, end: 20200309
  3. METHOTREXATE. [Concomitant]
     Active Substance: METHOTREXATE
     Dosage: DOSAGE IS UNCERTAIN.
     Route: 065
     Dates: start: 202001
  4. FLUDARABINE PHOSPHATE. [Concomitant]
     Active Substance: FLUDARABINE PHOSPHATE
     Dosage: DOSAGE IS UNCERTAIN.
     Route: 065
  5. FILGRASTIM [Concomitant]
     Active Substance: FILGRASTIM
     Dosage: DOSAGE IS UNCERTAIN.
     Route: 065
  6. CEFEPIME DIHYDROCHLORIDE [Concomitant]
     Active Substance: CEFEPIME HYDROCHLORIDE
     Dosage: DOSAGE IS UNCERTAIN.
     Route: 065
  7. RITUXAN [Concomitant]
     Active Substance: RITUXIMAB
     Dosage: DOSAGE IS UNCERTAIN.
     Route: 041
     Dates: start: 202001
  8. DOXORUBICIN HYDROCHLORIDE. [Concomitant]
     Active Substance: DOXORUBICIN HYDROCHLORIDE
     Dosage: DOSAGE IS UNCERTAIN.
     Route: 041
     Dates: start: 202001
  9. ONCOVIN [Concomitant]
     Active Substance: VINCRISTINE SULFATE
     Route: 041
     Dates: start: 202001
  10. MEROPENEM. [Concomitant]
     Active Substance: MEROPENEM
     Dosage: DOSAGE IS UNCERTAIN.
     Route: 065
  11. VANCOMYCIN [Concomitant]
     Active Substance: VANCOMYCIN
     Dosage: DOSAGE IS UNCERTAIN.
     Route: 065
  12. METHYLPREDNISOLONE. [Concomitant]
     Active Substance: METHYLPREDNISOLONE
  13. CYCLOPHOSPHAMIDE HYDRATE [Concomitant]
     Active Substance: CYCLOPHOSPHAMIDE
     Dosage: DOSAGE IS UNCERTAIN.
     Route: 041
     Dates: start: 202001

REACTIONS (5)
  - Peripheral sensorimotor neuropathy [Recovering/Resolving]
  - Malignant neoplasm progression [Unknown]
  - Pancytopenia [Unknown]
  - Diffuse large B-cell lymphoma stage III [Unknown]
  - Bone marrow failure [Unknown]

NARRATIVE: CASE EVENT DATE: 202004
